FAERS Safety Report 5638720-3 (Version None)
Quarter: 2008Q1

REPORT INFORMATION
  Report Type: 
  Country: None (occurrence: None)
  Receive Date: 20080226
  Receipt Date: 20071221
  Transmission Date: 20080703
  Serious: No
  Sender: FDA-Public Use
  Company Number: A0700299A

PATIENT
  Sex: Female

DRUGS (4)
  1. IMITREX [Suspect]
     Indication: MIGRAINE
     Dosage: 6MG AS REQUIRED
     Route: 058
     Dates: start: 19950101
  2. LEXAPRO [Concomitant]
  3. SOMA [Concomitant]
  4. TOPAMAX [Concomitant]

REACTIONS (5)
  - APPLICATION SITE BRUISING [None]
  - INCORRECT ROUTE OF DRUG ADMINISTRATION [None]
  - MUSCLE TIGHTNESS [None]
  - THERAPEUTIC RESPONSE DECREASED [None]
  - THERAPEUTIC RESPONSE DELAYED [None]
